FAERS Safety Report 5777995-7 (Version None)
Quarter: 2008Q2

REPORT INFORMATION
  Report Type: 
  Country: None (occurrence: None)
  Receive Date: 20080619
  Receipt Date: 20080306
  Transmission Date: 20081010
  Serious: Yes (Death, Other)
  Sender: FDA-Public Use
  Company Number: US-BAYER-200820376GPV

PATIENT
  Age: 9 Year
  Sex: Female

DRUGS (4)
  1. CAMPATH [Suspect]
     Indication: STEM CELL TRANSPLANT
  2. FLUDARABINE PHOSPHATE [Suspect]
     Indication: STEM CELL TRANSPLANT
  3. MELPHALAN [Suspect]
     Indication: STEM CELL TRANSPLANT
  4. METHYLPREDNISOLONE [Concomitant]
     Indication: GRAFT VERSUS HOST DISEASE

REACTIONS (2)
  - CHRONIC GRAFT VERSUS HOST DISEASE [None]
  - INFECTION [None]
